FAERS Safety Report 8461278 (Version 10)
Quarter: 2014Q1

REPORT INFORMATION
  Report Type: Spontaneous
  Country: US (occurrence: US)
  Receive Date: 20120315
  Receipt Date: 20140108
  Transmission Date: 20141002
  Serious: Yes (Death, Hospitalization)
  Sender: FDA-Public Use
  Company Number: US-GLAXOSMITHKLINE-A0932213A

PATIENT
  Age: 75 Year
  Sex: Female
  Weight: 43.2 kg

DRUGS (20)
  1. FLOLAN [Suspect]
     Indication: PULMONARY ARTERIAL HYPERTENSION
     Dosage: 31NGKM CONTINUOUS
     Route: 042
     Dates: start: 20061122
  2. TRACLEER [Concomitant]
     Dosage: 1TAB TWICE PER DAY
  3. WARFARIN [Concomitant]
     Dosage: 4MG AS DIRECTED
     Route: 048
  4. REVATIO [Concomitant]
     Dosage: 20MG THREE TIMES PER DAY
     Route: 048
  5. IRON [Concomitant]
     Indication: BLOOD IRON ABNORMAL
     Route: 048
  6. OXYGEN [Concomitant]
     Dosage: 6L CONTINUOUS
  7. TYLENOL [Concomitant]
     Dosage: 325MG AS REQUIRED
  8. VITAMIN D [Concomitant]
     Dosage: 50000UNIT WEEKLY
  9. VICODIN ES [Concomitant]
     Dosage: 2TAB AS REQUIRED
     Route: 048
  10. CALCIUM [Concomitant]
     Dosage: 500MG PER DAY
  11. CELEBREX [Concomitant]
     Dosage: 200MG PER DAY
  12. PREMARIN [Concomitant]
     Dosage: .625MG PER DAY
  13. PREDNISONE [Concomitant]
     Dosage: 10MG PER DAY
  14. FUROSEMIDE [Concomitant]
     Dosage: 80MG PER DAY
  15. ALPRAZOLAM [Concomitant]
     Dosage: 1MG FOUR TIMES PER DAY
  16. KLOR-CON [Concomitant]
     Dosage: 10MEQ AS DIRECTED
  17. ALLOPURINOL [Concomitant]
     Dosage: 300MG PER DAY
  18. SYMBICORT [Concomitant]
     Dosage: 2PUFF TWICE PER DAY
  19. SPIRIVA [Concomitant]
     Dosage: 1PUFF PER DAY
  20. COUMADIN [Concomitant]

REACTIONS (14)
  - Cardiogenic shock [Recovering/Resolving]
  - Headache [Unknown]
  - Epistaxis [Unknown]
  - Dizziness [Recovering/Resolving]
  - Oedema [Recovering/Resolving]
  - Blood iron decreased [Not Recovered/Not Resolved]
  - Diarrhoea [Unknown]
  - Weight decreased [Unknown]
  - Upper limb fracture [Not Recovered/Not Resolved]
  - Lower limb fracture [Not Recovered/Not Resolved]
  - Dyspnoea [Unknown]
  - Pneumonia [Unknown]
  - Pyrexia [Not Recovered/Not Resolved]
  - Death [Fatal]
